FAERS Safety Report 9637074 (Version 1)
Quarter: 2013Q2

REPORT INFORMATION
  Report Type: Spontaneous
  Country: US (occurrence: None)
  Receive Date: 20130419
  Receipt Date: 20130419
  Transmission Date: 20140414
  Serious: Yes (Hospitalization)
  Sender: FDA-Public Use
  Company Number: 37035

PATIENT
  Age: 65 Year
  Sex: Male

DRUGS (1)
  1. GLASSIA [Suspect]
     Indication: PRODUCT USED FOR UNKNOWN INDICATION
     Dates: end: 201207

REACTIONS (2)
  - Pulmonary thrombosis [None]
  - Thrombosis [None]
